FAERS Safety Report 9783930 (Version 1)
Quarter: 2013Q4

REPORT INFORMATION
  Report Type: Spontaneous
  Country: TH (occurrence: TH)
  Receive Date: 20131226
  Receipt Date: 20131226
  Transmission Date: 20140711
  Serious: Yes (Hospitalization, Other)
  Sender: FDA-Public Use
  Company Number: PHHY2013TH149451

PATIENT
  Age: 68 Year
  Sex: Female

DRUGS (1)
  1. WARFARIN [Suspect]
     Indication: ANTICOAGULANT THERAPY

REACTIONS (4)
  - Subdural haematoma [Unknown]
  - Cerebral infarction [Unknown]
  - Hemiplegia [Unknown]
  - Basal ganglia infarction [Unknown]
